FAERS Safety Report 5733101-6 (Version None)
Quarter: 2008Q2

REPORT INFORMATION
  Report Type: 
  Country: None (occurrence: None)
  Receive Date: 20080509
  Receipt Date: 20080502
  Transmission Date: 20081010
  Serious: Yes (Hospitalization)
  Sender: FDA-Public Use
  Company Number: US-BAYER-200612792BWH

PATIENT
  Age: 71 Year
  Sex: Female
  Weight: 77 kg

DRUGS (17)
  1. NEXAVAR [Suspect]
     Dosage: TOTAL DAILY DOSE: 400 MG  UNIT DOSE: 200 MG
     Route: 048
     Dates: start: 20080318
  2. NEXAVAR [Suspect]
     Dosage: TOTAL DAILY DOSE: 400 MG  UNIT DOSE: 200 MG
     Route: 048
     Dates: start: 20080308, end: 20080313
  3. NEXAVAR [Suspect]
     Dosage: TOTAL DAILY DOSE: 400 MG  UNIT DOSE: 200 MG
     Route: 048
     Dates: start: 20060412, end: 20060101
  4. NEXAVAR [Suspect]
     Dosage: TOTAL DAILY DOSE: 800 MG  UNIT DOSE: 200 MG
     Dates: start: 20060101, end: 20070301
  5. NEXAVAR [Suspect]
     Dosage: TOTAL DAILY DOSE: 800 MG  UNIT DOSE: 200 MG
     Route: 048
     Dates: start: 20060201, end: 20060101
  6. DEPRESSION MEDICATION (NOS) [Concomitant]
     Indication: DEPRESSION
  7. ZESTRIL [Concomitant]
  8. PROZAC [Concomitant]
  9. LORAZEPAM [Concomitant]
  10. RITALIN [Concomitant]
  11. METOPROLOL TARTRATE [Concomitant]
  12. LIPITOR [Concomitant]
  13. TYLENOL (CAPLET) [Concomitant]
  14. CYMBALTA [Concomitant]
  15. LOPRESSOR [Concomitant]
  16. ZOLOFT [Concomitant]
  17. ASPIRIN [Concomitant]

REACTIONS (13)
  - ASTHENIA [None]
  - BLOOD PRESSURE FLUCTUATION [None]
  - CEREBROVASCULAR ACCIDENT [None]
  - CONSTIPATION [None]
  - DECREASED APPETITE [None]
  - DEHYDRATION [None]
  - DEPRESSION [None]
  - DIARRHOEA [None]
  - DRY SKIN [None]
  - HEART RATE IRREGULAR [None]
  - NAUSEA [None]
  - PRURITUS [None]
  - RASH [None]
